FAERS Safety Report 26031699 (Version 1)
Quarter: 2025Q4

REPORT INFORMATION
  Report Type: Spontaneous
  Country: EU (occurrence: EU)
  Receive Date: 20251112
  Receipt Date: 20251112
  Transmission Date: 20260118
  Serious: Yes (Hospitalization, Other)
  Sender: HIKMA
  Company Number: None

PATIENT
  Age: 69 Year
  Sex: Female
  Weight: 70 kg

DRUGS (7)
  1. OZEMPIC [Suspect]
     Active Substance: SEMAGLUTIDE
     Indication: Weight decreased
     Dosage: 1 MILLIGRAM, WEEKLY
     Route: 058
     Dates: start: 202506, end: 20250818
  2. PANTOPRAZOLE [Suspect]
     Active Substance: PANTOPRAZOLE
     Indication: Product used for unknown indication
     Dosage: UNKNOWN
     Route: 065
  3. FLUOXETINE [Concomitant]
     Active Substance: FLUOXETINE HYDROCHLORIDE
     Indication: Product used for unknown indication
     Dosage: UNKNOWN
     Route: 065
  4. IRBESARTAN [Concomitant]
     Active Substance: IRBESARTAN
     Indication: Product used for unknown indication
     Dosage: UNKNOWN
     Route: 065
  5. METFORMIN HYDROCHLORIDE [Concomitant]
     Active Substance: METFORMIN HYDROCHLORIDE
     Indication: Product used for unknown indication
     Dosage: UNKNOWN
     Route: 065
  6. ASTEMIZOLE [Concomitant]
     Active Substance: ASTEMIZOLE
     Indication: Product used for unknown indication
     Dosage: UNKNOWN
     Route: 065
  7. TRAMADOL HYDROCHLORIDE [Concomitant]
     Active Substance: TRAMADOL HYDROCHLORIDE
     Indication: Product used for unknown indication
     Dosage: UNK
     Route: 065

REACTIONS (1)
  - Colitis [Not Recovered/Not Resolved]

NARRATIVE: CASE EVENT DATE: 20250828
